FAERS Safety Report 19029756 (Version 1)
Quarter: 2021Q1

REPORT INFORMATION
  Report Type: Spontaneous
  Country: US (occurrence: US)
  Receive Date: 20210317
  Receipt Date: 20210317
  Transmission Date: 20210420
  Serious: No
  Sender: FDA-Public Use
  Company Number: None

PATIENT
  Age: 61 Year
  Sex: Female

DRUGS (1)
  1. DEFEROXAMINE MESYL SDV 2GM APP (FRESENIUS KABI) [Suspect]
     Active Substance: DEFEROXAMINE MESYLATE
     Indication: HAEMOCHROMATOSIS
     Dosage: ?          OTHER DOSE:1900MG (20ML);OTHER FREQUENCY:DAILY MON?FRI;?
     Route: 058
     Dates: start: 20201118

REACTIONS (7)
  - Nausea [None]
  - Device infusion issue [None]
  - Headache [None]
  - Incorrect drug administration rate [None]
  - Palpitations [None]
  - Abdominal pain upper [None]
  - Haemoglobin decreased [None]

NARRATIVE: CASE EVENT DATE: 20210228
